FAERS Safety Report 5787804-8 (Version None)
Quarter: 2008Q2

REPORT INFORMATION
  Report Type: 
  Country: None (occurrence: None)
  Receive Date: 20080625
  Receipt Date: 20080613
  Transmission Date: 20081010
  Serious: Yes (Other)
  Sender: FDA-Public Use
  Company Number: PHHY2008JP06426

PATIENT
  Age: 60 Year
  Sex: Male

DRUGS (1)
  1. DIOVAN [Suspect]
     Indication: HYPERTENSION
     Dosage: 80 MG, UNK
     Route: 048
     Dates: start: 20080419, end: 20080420

REACTIONS (1)
  - URTICARIA [None]
